FAERS Safety Report 9413077 (Version 1)
Quarter: 2013Q3

REPORT INFORMATION
  Report Type: Spontaneous
  Country: IL (occurrence: IL)
  Receive Date: 20130722
  Receipt Date: 20130722
  Transmission Date: 20140515
  Serious: Yes (Life-Threatening)
  Sender: FDA-Public Use
  Company Number: IL-GLAXOSMITHKLINE-B0909415A

PATIENT
  Age: 43 Year
  Sex: Female

DRUGS (7)
  1. ZINACEF [Suspect]
     Indication: PROPHYLAXIS
     Dosage: 1.5MG PER DAY
     Route: 042
     Dates: start: 20130709, end: 20130709
  2. LIDOCAINE [Concomitant]
  3. FENTANYL [Concomitant]
  4. PROPOFOL [Concomitant]
  5. DEXAMETHASONE [Concomitant]
  6. ROCURONIUM [Concomitant]
  7. ONDANSETRON [Concomitant]

REACTIONS (1)
  - Anaphylactic shock [Recovered/Resolved]
